FAERS Safety Report 26097796 (Version 1)
Quarter: 2025Q4

REPORT INFORMATION
  Report Type: Report from Study
  Country: CA (occurrence: CA)
  Receive Date: 20251127
  Receipt Date: 20251127
  Transmission Date: 20260117
  Serious: Yes (Other)
  Sender: CELLTRION
  Company Number: CA-CELLTRION INC.-2025CA042488

PATIENT

DRUGS (2)
  1. OMALIZUMAB [Suspect]
     Active Substance: OMALIZUMAB
     Indication: Asthma
     Dosage: 300 MILLIGRAM
     Route: 058
  2. OMALIZUMAB [Suspect]
     Active Substance: OMALIZUMAB
     Dosage: 300 MILLIGRAM
     Route: 058

REACTIONS (10)
  - Asthma [Unknown]
  - Cold sweat [Unknown]
  - Dyskinesia [Unknown]
  - Frustration tolerance decreased [Unknown]
  - Loss of consciousness [Unknown]
  - Throat clearing [Unknown]
  - Weight decreased [Unknown]
  - Wheezing [Unknown]
  - Yawning [Unknown]
  - Syncope [Unknown]
